FAERS Safety Report 25290011 (Version 1)
Quarter: 2025Q2

REPORT INFORMATION
  Report Type: Spontaneous
  Country: CN (occurrence: CN)
  Receive Date: 20250509
  Receipt Date: 20250509
  Transmission Date: 20250717
  Serious: Yes (Life-Threatening, Hospitalization, Other)
  Sender: SANOFI AVENTIS
  Company Number: CN-SA-2025SA133023

PATIENT
  Age: 28 Year
  Sex: Female
  Weight: 52.5 kg

DRUGS (4)
  1. ZOLPIDEM TARTRATE [Suspect]
     Active Substance: ZOLPIDEM TARTRATE
     Indication: Depression
     Dosage: 10 DF, QD
     Route: 048
     Dates: start: 20250501, end: 20250501
  2. LORAZEPAM [Suspect]
     Active Substance: LORAZEPAM
     Indication: Depression
     Dosage: 10 DF, QD
     Route: 048
     Dates: start: 20250501, end: 20250501
  3. TRAZODONE HYDROCHLORIDE [Suspect]
     Active Substance: TRAZODONE HYDROCHLORIDE
     Indication: Depression
     Dosage: 10 DF, QD
     Route: 048
     Dates: start: 20250501, end: 20250501
  4. PEROSPIRONE HYDROCHLORIDE [Suspect]
     Active Substance: PEROSPIRONE HYDROCHLORIDE
     Indication: Depression
     Dosage: 10 DF, QD
     Route: 048
     Dates: start: 20250501, end: 20250501

REACTIONS (7)
  - Dizziness [Recovered/Resolved]
  - Suicidal behaviour [Recovered/Resolved]
  - Lethargy [Recovered/Resolved]
  - Sinus tachycardia [Recovered/Resolved]
  - Blood pressure systolic increased [Recovered/Resolved]
  - Blood pressure diastolic decreased [Recovered/Resolved]
  - Intentional overdose [Recovered/Resolved]

NARRATIVE: CASE EVENT DATE: 20250501
